FAERS Safety Report 8847909 (Version 2)
Quarter: 2012Q4

REPORT INFORMATION
  Report Type: 
  Country: US (occurrence: US)
  Receive Date: 20121018
  Receipt Date: 20121120
  Transmission Date: 20130627
  Serious: Yes (Other)
  Sender: FDA-Public Use
  Company Number: US-PFIZER INC-2012254963

PATIENT
  Age: 76 Year
  Sex: Male
  Weight: 97.51 kg

DRUGS (1)
  1. TOVIAZ [Suspect]
     Indication: OVERACTIVE BLADDER
     Dosage: 4 mg, 1x/day
     Route: 048
     Dates: start: 20121009, end: 20121009

REACTIONS (7)
  - Urinary retention [Recovered/Resolved]
  - Blood urine present [Recovered/Resolved]
  - Dysuria [Recovered/Resolved]
  - Pain [Recovered/Resolved]
  - Testicular pain [Recovered/Resolved]
  - Infection [Recovered/Resolved]
  - Insomnia [Recovered/Resolved]
